FAERS Safety Report 16490618 (Version 1)
Quarter: 2019Q2

REPORT INFORMATION
  Report Type: Spontaneous
  Country: US (occurrence: US)
  Receive Date: 20190628
  Receipt Date: 20190628
  Transmission Date: 20190711
  Serious: Yes (Other)
  Sender: FDA-Public Use
  Company Number: US-ASTRAZENECA-2019SE91514

PATIENT
  Sex: Male

DRUGS (5)
  1. PERPHENAZINE. [Suspect]
     Active Substance: PERPHENAZINE
     Route: 065
  2. RISPERIDONE. [Suspect]
     Active Substance: RISPERIDONE
     Route: 065
  3. SEROQUEL [Suspect]
     Active Substance: QUETIAPINE FUMARATE
     Route: 048
  4. ABILIFY [Suspect]
     Active Substance: ARIPIPRAZOLE
     Dosage: 5.0MG UNKNOWN
     Route: 065
  5. PERPHENAZINE. [Suspect]
     Active Substance: PERPHENAZINE
     Dosage: 5.0MG UNKNOWN
     Route: 065

REACTIONS (2)
  - Lethargy [Recovered/Resolved]
  - Aphasia [Recovered/Resolved]
